FAERS Safety Report 4350902-X (Version None)
Quarter: 2004Q2

REPORT INFORMATION
  Report Type: 
  Country: None (occurrence: None)
  Receive Date: 20040427
  Receipt Date: 20040415
  Transmission Date: 20050107
  Serious: Yes (Hospitalization)
  Sender: FDA-Public Use
  Company Number: A01200401826

PATIENT
  Age: 72 Year
  Sex: Female

DRUGS (1)
  1. PLAVIX [Suspect]
     Indication: PULMONARY EMBOLISM
     Dosage: 75 MG QD
     Route: 048

REACTIONS (2)
  - DRUG INEFFECTIVE FOR UNAPPROVED INDICATION [None]
  - PULMONARY EMBOLISM [None]
